FAERS Safety Report 24662971 (Version 2)
Quarter: 2024Q4

REPORT INFORMATION
  Report Type: Spontaneous
  Country: US (occurrence: US)
  Receive Date: 20241126
  Receipt Date: 20241128
  Transmission Date: 20250115
  Serious: Yes (Death, Life-Threatening, Hospitalization, Other)
  Sender: RANBAXY
  Company Number: US-SUN PHARMACEUTICAL INDUSTRIES LTD-2024R1-480909

PATIENT

DRUGS (1)
  1. DEXAMETHASONE [Suspect]
     Active Substance: DEXAMETHASONE
     Indication: Product used for unknown indication
     Dosage: UNK
     Route: 064

REACTIONS (10)
  - Hepatic necrosis [Fatal]
  - Hypothermia [Fatal]
  - Metabolic acidosis [Fatal]
  - Leukocytosis [Fatal]
  - Foetal exposure during pregnancy [Unknown]
  - Premature baby [Unknown]
  - Dilated cardiomyopathy [Unknown]
  - Pleural effusion [Unknown]
  - Ascites [Unknown]
  - Pericardial effusion [Unknown]
